FAERS Safety Report 7727447-X (Version None)
Quarter: 2011Q3

REPORT INFORMATION
  Report Type: 
  Country: None (occurrence: None)
  Receive Date: 20110902
  Receipt Date: 20110823
  Transmission Date: 20111222
  Serious: Yes (Hospitalization, Other)
  Sender: FDA-Public Use
  Company Number: US-BAYER-201024603NA

PATIENT
  Age: 23 Year
  Sex: Female
  Weight: 99.773 kg

DRUGS (7)
  1. ST. JOHN'S WORT [Concomitant]
  2. METFORMIN HCL [Concomitant]
     Dosage: 500 MG, BID
  3. YAZ [Suspect]
     Indication: CONTRACEPTION
     Route: 048
     Dates: start: 20060101, end: 20090215
  4. NORGESTIMATE AND ETHINYL ESTRADIOL [Concomitant]
     Dosage: UNK UNK, QD
  5. YASMIN [Suspect]
     Indication: CONTRACEPTION
     Dosage: UNK UNK, UNK
     Route: 048
     Dates: start: 20060101, end: 20090201
  6. LEVOTHYROXINE SODIUM [Concomitant]
     Dosage: 75 ?G, UNK
  7. DROSPIRENONE AND ETHINYL ESTRADIOL [Suspect]
     Indication: CONTRACEPTION

REACTIONS (5)
  - CHOLECYSTECTOMY [None]
  - THROMBOSIS [None]
  - PULMONARY EMBOLISM [None]
  - VENOUS THROMBOSIS LIMB [None]
  - CHEST PAIN [None]
